FAERS Safety Report 16995125 (Version 2)
Quarter: 2020Q1

REPORT INFORMATION
  Report Type: Spontaneous
  Country: US (occurrence: US)
  Receive Date: 20191105
  Receipt Date: 20200318
  Transmission Date: 20200409
  Serious: No
  Sender: FDA-Public Use
  Company Number: US-PFIZER INC-2019472786

PATIENT
  Age: 65 Year
  Sex: Female

DRUGS (1)
  1. IBRANCE [Suspect]
     Active Substance: PALBOCICLIB
     Dosage: 125 MG, CYCLIC (125MG ONCE DAILY FOR 21 DAYS, 7 DAYS OFF)
     Route: 048

REACTIONS (6)
  - Epistaxis [Unknown]
  - Eating disorder [Unknown]
  - Laboratory test abnormal [Unknown]
  - Stomatitis [Unknown]
  - Oral mucosal blistering [Unknown]
  - Pruritus [Unknown]
